FAERS Safety Report 8538196-2 (Version None)
Quarter: 2012Q3

REPORT INFORMATION
  Report Type: 
  Country: None (occurrence: None)
  Receive Date: 20120726
  Receipt Date: 20120626
  Transmission Date: 20120928
  Serious: Yes (Death)
  Sender: FDA-Public Use
  Company Number: US-009507513-2012SP026253

PATIENT

DRUGS (2)
  1. IMPLANON [Suspect]
     Indication: CONTRACEPTION
     Dosage: 1 DF, UNK
  2. IMPLANON [Suspect]
     Dosage: 1 DF, UNK

REACTIONS (1)
  - MEDICAL DEVICE COMPLICATION [None]
